FAERS Safety Report 14693433 (Version 1)
Quarter: 2018Q1

REPORT INFORMATION
  Report Type: Spontaneous
  Country: US (occurrence: US)
  Receive Date: 20180329
  Receipt Date: 20180329
  Transmission Date: 20180509
  Serious: Yes (Hospitalization)
  Sender: FDA-Public Use
  Company Number: US-JNJFOC-20180338068

PATIENT
  Age: 56 Year
  Sex: Male

DRUGS (1)
  1. INVOKANA [Suspect]
     Active Substance: CANAGLIFLOZIN
     Indication: PRODUCT USED FOR UNKNOWN INDICATION
     Dosage: 100 AND 300 MG
     Route: 048

REACTIONS (3)
  - Toe amputation [Unknown]
  - Osteomyelitis [Unknown]
  - Localised infection [Unknown]

NARRATIVE: CASE EVENT DATE: 20160601
